FAERS Safety Report 6619729-X (Version None)
Quarter: 2010Q1

REPORT INFORMATION
  Report Type: 
  Country: None (occurrence: None)
  Receive Date: 20100309
  Receipt Date: 20100224
  Transmission Date: 20100710
  Serious: Yes (Other)
  Sender: FDA-Public Use
  Company Number: PHHY2010MX10620

PATIENT
  Sex: Female

DRUGS (1)
  1. EXJADE [Suspect]
     Indication: ANAEMIA
     Dosage: 40 (UNITS NOT SPECIFIED)
     Route: 048
     Dates: start: 20070227

REACTIONS (3)
  - BLOOD BILIRUBIN INCREASED [None]
  - NAUSEA [None]
  - STEM CELL TRANSPLANT [None]
